FAERS Safety Report 8133943-6 (Version None)
Quarter: 2012Q1

REPORT INFORMATION
  Report Type: 
  Country: None (occurrence: None)
  Receive Date: 20120213
  Receipt Date: 20120203
  Transmission Date: 20120608
  Serious: Yes (Death)
  Sender: FDA-Public Use
  Company Number: JP-ASTRAZENECA-2012SE08411

PATIENT
  Age: 37 Year
  Sex: Female

DRUGS (2)
  1. PSYCHOTROPIC AGENTS [Concomitant]
     Route: 048
  2. SEROQUEL [Suspect]
     Route: 048

REACTIONS (1)
  - DEATH [None]
